FAERS Safety Report 15373107 (Version 1)
Quarter: 2018Q3

REPORT INFORMATION
  Report Type: Report from Study
  Country: None (occurrence: JP)
  Receive Date: 20180912
  Receipt Date: 20180912
  Transmission Date: 20181010
  Serious: Yes (Death)
  Sender: FDA-Public Use
  Company Number: JP-BAUSCH-BL-2017-011196

PATIENT
  Age: 38 Year
  Sex: Male

DRUGS (12)
  1. CHOREAZINE TABLETS 12.5 MG [Suspect]
     Active Substance: TETRABENAZINE
     Indication: HUNTINGTON^S DISEASE
     Route: 048
     Dates: start: 20160411, end: 20160418
  2. WINTERMIN [Concomitant]
     Active Substance: PROMAZINE
     Indication: INSOMNIA
  3. CHOREAZINE TABLETS 12.5 MG [Suspect]
     Active Substance: TETRABENAZINE
     Route: 048
     Dates: start: 20160525, end: 20160601
  4. CHOREAZINE TABLETS 12.5 MG [Suspect]
     Active Substance: TETRABENAZINE
     Route: 048
     Dates: start: 20160629
  5. CHOREAZINE TABLETS 12.5 MG [Suspect]
     Active Substance: TETRABENAZINE
     Route: 048
     Dates: start: 20160608, end: 20160615
  6. ZYPREXA [Concomitant]
     Active Substance: OLANZAPINE
     Indication: AGITATION
     Route: 048
     Dates: start: 20150730
  7. CHOREAZINE TABLETS 12.5 MG [Suspect]
     Active Substance: TETRABENAZINE
     Route: 048
     Dates: start: 20160418, end: 20160425
  8. CHOREAZINE TABLETS 12.5 MG [Suspect]
     Active Substance: TETRABENAZINE
     Route: 048
     Dates: start: 20160615, end: 20160622
  9. ZYPREXA [Concomitant]
     Active Substance: OLANZAPINE
     Indication: INSOMNIA
  10. CHOREAZINE TABLETS 12.5 MG [Suspect]
     Active Substance: TETRABENAZINE
     Route: 048
     Dates: start: 20160601, end: 20160608
  11. CHOREAZINE TABLETS 12.5 MG [Suspect]
     Active Substance: TETRABENAZINE
     Route: 048
     Dates: start: 20160622, end: 20160629
  12. WINTERMIN [Concomitant]
     Active Substance: PROMAZINE
     Indication: AGITATION
     Route: 048
     Dates: start: 20150730

REACTIONS (2)
  - Chorea [Not Recovered/Not Resolved]
  - Fall [Fatal]

NARRATIVE: CASE EVENT DATE: 201604
